FAERS Safety Report 16242251 (Version 3)
Quarter: 2019Q3

REPORT INFORMATION
  Report Type: Report from Study
  Country: CA (occurrence: CA)
  Receive Date: 20190426
  Receipt Date: 20190829
  Transmission Date: 20191004
  Serious: Yes (Other)
  Sender: FDA-Public Use
  Company Number: CA-TEVA-2019-CA-1041054

PATIENT
  Age: 54 Year
  Sex: Female

DRUGS (6)
  1. DICLOFENAC [Suspect]
     Active Substance: DICLOFENAC
     Indication: PRODUCT USED FOR UNKNOWN INDICATION
     Dosage: 100 MILLIGRAM DAILY;
     Route: 048
  2. DICLOFENAC [Suspect]
     Active Substance: DICLOFENAC
     Route: 048
  3. MORPHINE [Suspect]
     Active Substance: MORPHINE
     Indication: PRODUCT USED FOR UNKNOWN INDICATION
     Route: 065
  4. CYCLOPRINE [Concomitant]
  5. CYCLOBENZAPRINE/DICLOFENAC [Concomitant]
     Indication: PRODUCT USED FOR UNKNOWN INDICATION
     Route: 065
  6. ZOLMITRIPTAN. [Concomitant]
     Active Substance: ZOLMITRIPTAN
     Indication: MIGRAINE
     Route: 048

REACTIONS (5)
  - Pruritus [Recovering/Resolving]
  - Sneezing [Recovering/Resolving]
  - Angioedema [Recovering/Resolving]
  - Conjunctivitis [Recovering/Resolving]
  - Urticaria [Recovering/Resolving]
